FAERS Safety Report 6725316-5 (Version None)
Quarter: 2010Q2

REPORT INFORMATION
  Report Type: 
  Country: None (occurrence: None)
  Receive Date: 20100514
  Receipt Date: 20100511
  Transmission Date: 20101027
  Serious: Yes (Other)
  Sender: FDA-Public Use
  Company Number: JP-BRISTOL-MYERS SQUIBB COMPANY-15082381

PATIENT
  Age: 69 Year
  Sex: Female

DRUGS (2)
  1. ERBITUX [Suspect]
     Indication: COLON CANCER
     Route: 042
     Dates: start: 20100113, end: 20100414
  2. CAMPTOSAR [Concomitant]
     Indication: COLON CANCER
     Route: 042
     Dates: start: 20100113

REACTIONS (1)
  - CEREBRAL INFARCTION [None]
